FAERS Safety Report 17008497 (Version 1)
Quarter: 2019Q4

REPORT INFORMATION
  Report Type: Spontaneous
  Country: US (occurrence: US)
  Receive Date: 20191108
  Receipt Date: 20191108
  Transmission Date: 20200122
  Serious: Yes (Life-Threatening, Hospitalization, Other)
  Sender: FDA-Public Use
  Company Number: US-ACCORD-160233

PATIENT
  Age: 39 Year
  Sex: Male

DRUGS (2)
  1. HALDOL [Concomitant]
     Active Substance: HALOPERIDOL
     Indication: SCHIZOAFFECTIVE DISORDER
  2. CLOZAPINE. [Suspect]
     Active Substance: CLOZAPINE
     Dosage: WHOLE BOTTLE

REACTIONS (9)
  - Renal tubular necrosis [Unknown]
  - Mental status changes [Unknown]
  - Suicide attempt [Unknown]
  - Acidosis [Unknown]
  - Overdose [Unknown]
  - Acute kidney injury [Unknown]
  - Tachycardia [Unknown]
  - Shock [Unknown]
  - Hypotension [Unknown]
